FAERS Safety Report 8425278-9 (Version None)
Quarter: 2012Q2

REPORT INFORMATION
  Report Type: 
  Country: None (occurrence: None)
  Receive Date: 20120611
  Receipt Date: 20120604
  Transmission Date: 20120825
  Serious: Yes (Hospitalization)
  Sender: FDA-Public Use
  Company Number: BR-US-EMD SERONO, INC.-7137592

PATIENT
  Sex: Female

DRUGS (2)
  1. CLONAZEPAM [Concomitant]
     Indication: PRODUCT USED FOR UNKNOWN INDICATION
  2. REBIF [Suspect]
     Indication: RELAPSING-REMITTING MULTIPLE SCLEROSIS
     Dates: start: 20040601

REACTIONS (5)
  - DECREASED APPETITE [None]
  - FATIGUE [None]
  - NAUSEA [None]
  - WEIGHT DECREASED [None]
  - DEPRESSION [None]
